FAERS Safety Report 8943869 (Version 1)
Quarter: 2012Q4

REPORT INFORMATION
  Report Type: Report from Study
  Country: CA (occurrence: CA)
  Receive Date: 20121204
  Receipt Date: 20121204
  Transmission Date: 20130627
  Serious: Yes (Other)
  Sender: FDA-Public Use
  Company Number: CA-JNJFOC-20121105689

PATIENT
  Age: 53 Year
  Sex: Female
  Weight: 90.72 kg

DRUGS (1)
  1. STELARA [Suspect]
     Indication: PSORIASIS
     Route: 058
     Dates: start: 2006, end: 20120613

REACTIONS (4)
  - Blood cholesterol increased [Unknown]
  - Blood test abnormal [Unknown]
  - Myalgia [Recovered/Resolved]
  - Arthralgia [Recovering/Resolving]
